FAERS Safety Report 9432214 (Version 1)
Quarter: 2013Q3

REPORT INFORMATION
  Report Type: Report from Study
  Country: DE (occurrence: DE)
  Receive Date: 20130731
  Receipt Date: 20130731
  Transmission Date: 20140515
  Serious: Yes (Hospitalization, Other)
  Sender: FDA-Public Use
  Company Number: PHHO2013DE009747

PATIENT
  Age: 56 Year
  Sex: Male

DRUGS (9)
  1. EVEROLIMUS [Suspect]
     Indication: RENAL CELL CARCINOMA
     Dosage: 10 MG, QD
     Route: 048
     Dates: start: 20130429
  2. SANDOCAL ^NOVARTIS^ [Concomitant]
     Dates: start: 201209
  3. DENOSUMAB [Concomitant]
     Dates: start: 201209
  4. PANTOPRAZOLE [Concomitant]
     Dates: start: 2010
  5. TAMSULOSIN [Concomitant]
     Dates: start: 2010
  6. NOVAMINSULFON [Concomitant]
     Dates: start: 20130402
  7. MARCUMAR [Concomitant]
     Dates: start: 20130526
  8. HYDROMORPHONE HCL [Concomitant]
     Dates: start: 20130528
  9. METOCLOPRAMIDE HCL [Concomitant]
     Dates: start: 20130528

REACTIONS (2)
  - Anaemia [Recovered/Resolved]
  - General physical health deterioration [Recovering/Resolving]
